FAERS Safety Report 8198230-9 (Version None)
Quarter: 2012Q1

REPORT INFORMATION
  Report Type: 
  Country: None (occurrence: None)
  Receive Date: 20120309
  Receipt Date: 20111212
  Transmission Date: 20120608
  Serious: No
  Sender: FDA-Public Use
  Company Number: US-AMGEN-USASP2011066047

PATIENT
  Sex: Female

DRUGS (3)
  1. LEFLUNOMIDE [Concomitant]
     Indication: ARTHRALGIA
     Dates: start: 20110101
  2. METHOTREXATE [Concomitant]
  3. PROLIA [Suspect]
     Indication: OSTEOPOROSIS POSTMENOPAUSAL
     Dosage: UNK
     Dates: start: 20110101

REACTIONS (3)
  - MOBILITY DECREASED [None]
  - MYALGIA [None]
  - ARTHRALGIA [None]
